FAERS Safety Report 9535961 (Version 2)
Quarter: 2013Q3

REPORT INFORMATION
  Report Type: Report from Study
  Country: US (occurrence: US)
  Receive Date: 20130919
  Receipt Date: 20130919
  Transmission Date: 20140515
  Serious: Yes (Death, Other)
  Sender: FDA-Public Use
  Company Number: US-ROCHE-1275241

PATIENT
  Age: 77 Year
  Sex: Male
  Weight: 97.16 kg

DRUGS (5)
  1. AVASTIN [Suspect]
     Indication: LUNG NEOPLASM MALIGNANT
     Route: 042
     Dates: start: 20130219
  2. AVASTIN [Suspect]
     Indication: BONE CANCER
  3. AVASTIN [Suspect]
     Indication: NEOPLASM MALIGNANT
  4. GRANISETRON [Concomitant]
     Route: 065
  5. ABRAXANE [Concomitant]
     Route: 065

REACTIONS (5)
  - Death [Fatal]
  - Cardiac failure congestive [Unknown]
  - Renal failure chronic [Unknown]
  - Cardiomyopathy [Unknown]
  - Fluid overload [Unknown]
